FAERS Safety Report 19974976 (Version 1)
Quarter: 2021Q4

REPORT INFORMATION
  Report Type: Spontaneous
  Country: US (occurrence: US)
  Receive Date: 20211020
  Receipt Date: 20211020
  Transmission Date: 20220303
  Serious: No
  Sender: FDA-Public Use
  Company Number: US-ALLERGAN-2046652US

PATIENT
  Sex: Female

DRUGS (1)
  1. LINZESS [Suspect]
     Active Substance: LINACLOTIDE
     Indication: Product used for unknown indication
     Dosage: ACTUAL: ON AND OFF FOR A MONTH NOW

REACTIONS (4)
  - Inappropriate schedule of product administration [Unknown]
  - Bowel movement irregularity [Unknown]
  - Emotional distress [Unknown]
  - Therapeutic product effect decreased [Unknown]
